FAERS Safety Report 8245108-8 (Version None)
Quarter: 2012Q1

REPORT INFORMATION
  Report Type: 
  Country: None (occurrence: None)
  Receive Date: 20120329
  Receipt Date: 20120323
  Transmission Date: 20120608
  Serious: Yes (Other)
  Sender: FDA-Public Use
  Company Number: JP-GLAXOSMITHKLINE-B0787587A

PATIENT
  Sex: Male
  Weight: 26.1 kg

DRUGS (4)
  1. FLUTICASONE PROPIONATE [Concomitant]
     Indication: ASTHMA
     Route: 055
  2. RELENZA [Suspect]
     Indication: INFLUENZA
     Dosage: 4IUAX PER DAY
     Route: 055
     Dates: start: 20120305, end: 20120310
  3. EPINASTINE HYDROCHLORIDE [Concomitant]
     Indication: ASTHMA
     Route: 048
  4. ACETAMINOPHEN [Concomitant]
     Indication: ASTHMA
     Route: 048

REACTIONS (2)
  - HALLUCINATION [None]
  - ABNORMAL BEHAVIOUR [None]
